FAERS Safety Report 19689629 (Version 1)
Quarter: 2021Q3

REPORT INFORMATION
  Report Type: Spontaneous
  Country: US (occurrence: US)
  Receive Date: 20210812
  Receipt Date: 20210812
  Transmission Date: 20211014
  Serious: Yes (Hospitalization)
  Sender: FDA-Public Use
  Company Number: US-STRIDES ARCOLAB LIMITED-2021SP026132

PATIENT
  Age: 14 Year
  Sex: Female

DRUGS (8)
  1. CLONIDINE. [Interacting]
     Active Substance: CLONIDINE
     Indication: AUTISM SPECTRUM DISORDER
     Dosage: 0.2 MILLIGRAM, AT BED TIME
     Route: 065
  2. CLONIDINE. [Interacting]
     Active Substance: CLONIDINE
     Indication: ATTENTION DEFICIT HYPERACTIVITY DISORDER
  3. BUPROPION HYDROCHLORIDE. [Interacting]
     Active Substance: BUPROPION HYDROCHLORIDE
     Indication: ATTENTION DEFICIT HYPERACTIVITY DISORDER
  4. TOPIRAMATE. [Interacting]
     Active Substance: TOPIRAMATE
     Indication: AUTISM SPECTRUM DISORDER
     Dosage: 150 MILLIGRAM, AT BED TIME
     Route: 065
  5. AMANTADINE HYDROCHLORIDE. [Suspect]
     Active Substance: AMANTADINE HYDROCHLORIDE
     Indication: AUTISM SPECTRUM DISORDER
     Dosage: 100 MILLIGRAM, BID
     Route: 065
  6. AMANTADINE HYDROCHLORIDE. [Interacting]
     Active Substance: AMANTADINE HYDROCHLORIDE
     Indication: ATTENTION DEFICIT HYPERACTIVITY DISORDER
  7. TOPIRAMATE. [Interacting]
     Active Substance: TOPIRAMATE
     Indication: ATTENTION DEFICIT HYPERACTIVITY DISORDER
  8. BUPROPION HYDROCHLORIDE. [Interacting]
     Active Substance: BUPROPION HYDROCHLORIDE
     Indication: AUTISM SPECTRUM DISORDER
     Dosage: 150 MILLIGRAM EXTENDED?RELEASE 2 WEEKS BEFORE HER HOSPITALISATION
     Route: 065

REACTIONS (4)
  - Off label use [Unknown]
  - Neurotoxicity [Recovered/Resolved]
  - Psychiatric symptom [Recovered/Resolved]
  - Drug interaction [Unknown]
